FAERS Safety Report 18025195 (Version 6)
Quarter: 2020Q4

REPORT INFORMATION
  Report Type: Spontaneous
  Country: US (occurrence: US)
  Receive Date: 20200715
  Receipt Date: 20201113
  Transmission Date: 20210113
  Serious: No
  Sender: FDA-Public Use
  Company Number: US-GLAXOSMITHKLINE-US2020AMR130890

PATIENT
  Sex: Female

DRUGS (5)
  1. ZEJULA [Suspect]
     Active Substance: NIRAPARIB
     Dosage: 200 MG, QD
     Route: 048
     Dates: start: 20200808
  2. ZEJULA [Suspect]
     Active Substance: NIRAPARIB
     Dosage: 200 MG, QD
     Route: 065
  3. ZEJULA [Suspect]
     Active Substance: NIRAPARIB
     Dosage: 100 MG, QD
     Route: 065
  4. ZEJULA [Suspect]
     Active Substance: NIRAPARIB
     Dosage: 200 MG, QD
     Route: 048
     Dates: start: 20200729
  5. ZEJULA [Suspect]
     Active Substance: NIRAPARIB
     Indication: OVARIAN CANCER
     Dosage: 100 MG, QD (QPM)
     Route: 065
     Dates: start: 20200629

REACTIONS (22)
  - Pelvic mass [Unknown]
  - Dizziness [Unknown]
  - Constipation [Unknown]
  - Haemoglobin decreased [Unknown]
  - Weight increased [Unknown]
  - Back pain [Unknown]
  - Fatigue [Unknown]
  - Abdominal discomfort [Unknown]
  - Full blood count abnormal [Unknown]
  - Adverse drug reaction [Not Recovered/Not Resolved]
  - Nausea [Unknown]
  - Abdominal distension [Not Recovered/Not Resolved]
  - Early satiety [Unknown]
  - Arthralgia [Unknown]
  - Flatulence [Unknown]
  - Carbohydrate antigen 125 increased [Not Recovered/Not Resolved]
  - Bone pain [Unknown]
  - Off label use [Unknown]
  - Dyspepsia [Unknown]
  - Gastric disorder [Unknown]
  - Joint swelling [Unknown]
  - Mass [Unknown]
